FAERS Safety Report 9613544 (Version 1)
Quarter: 2013Q4

REPORT INFORMATION
  Report Type: Spontaneous
  Country: GB (occurrence: None)
  Receive Date: 20131008
  Receipt Date: 20131008
  Transmission Date: 20140711
  Serious: Yes (Hospitalization)
  Sender: FDA-Public Use
  Company Number: AUR-APL-2013-08145

PATIENT
  Age: 39 Year
  Sex: Female
  Weight: 132.5 kg

DRUGS (2)
  1. QUETIAPINE [Suspect]
     Indication: BIPOLAR DISORDER
     Dosage: 800 MG (800 MG, 1 IN 1 D), ORAL
     Route: 048
     Dates: end: 20130909
  2. DEPAKOTE [Suspect]
     Indication: BIPOLAR DISORDER
     Dosage: 1500 MG (750 MG, 2 IN 1 D), ORAL
     Route: 048
     Dates: end: 20130909

REACTIONS (1)
  - Pancytopenia [None]
